FAERS Safety Report 25642142 (Version 1)
Quarter: 2025Q3

REPORT INFORMATION
  Report Type: Spontaneous
  Country: US (occurrence: US)
  Receive Date: 20250805
  Receipt Date: 20250805
  Transmission Date: 20251020
  Serious: No
  Sender: ELI LILLY AND COMPANY
  Company Number: US-ELI_LILLY_AND_COMPANY-US202507024790

PATIENT
  Age: 33 Year
  Sex: Female

DRUGS (4)
  1. HUMULIN N [Suspect]
     Active Substance: INSULIN HUMAN
     Indication: Product used for unknown indication
     Route: 065
     Dates: start: 20250501
  2. HUMULIN N [Suspect]
     Active Substance: INSULIN HUMAN
     Indication: Product used for unknown indication
     Route: 065
     Dates: start: 20250501
  3. HUMULIN N [Suspect]
     Active Substance: INSULIN HUMAN
     Route: 065
     Dates: end: 20250722
  4. HUMULIN N [Suspect]
     Active Substance: INSULIN HUMAN
     Route: 065
     Dates: end: 20250722

REACTIONS (1)
  - Maternal exposure during pregnancy [Unknown]
